FAERS Safety Report 7517119-9 (Version None)
Quarter: 2011Q2

REPORT INFORMATION
  Report Type: 
  Country: None (occurrence: None)
  Receive Date: 20110601
  Receipt Date: 20110526
  Transmission Date: 20111010
  Serious: Yes (Other)
  Sender: FDA-Public Use
  Company Number: DE-GILEAD-2011-0039614

PATIENT
  Sex: Male
  Weight: 84.5 kg

DRUGS (4)
  1. LAMIVUDINE [Concomitant]
  2. VIREAD [Suspect]
     Indication: HEPATITIS B
     Route: 048
     Dates: start: 20110201
  3. HEPSERA [Concomitant]
     Indication: HEPATITIS B
  4. ETRAVIRINE [Concomitant]

REACTIONS (1)
  - LEUKOPENIA [None]
